FAERS Safety Report 10752005 (Version 2)
Quarter: 2015Q1

REPORT INFORMATION
  Report Type: Spontaneous
  Country: US (occurrence: US)
  Receive Date: 20150130
  Receipt Date: 20150312
  Transmission Date: 20150721
  Serious: Yes (Other)
  Sender: FDA-Public Use
  Company Number: US-TEVA-537052USA

PATIENT
  Age: 36 Year
  Sex: Female
  Weight: 68.1 kg

DRUGS (4)
  1. PARAGARD T 380A [Suspect]
     Active Substance: COPPER
     Indication: CONTRACEPTION
     Route: 015
     Dates: start: 20100510
  2. PARAGARD T 380A [Suspect]
     Active Substance: COPPER
     Route: 015
  3. SERTRALINE [Concomitant]
     Active Substance: SERTRALINE HYDROCHLORIDE
     Indication: PRODUCT USED FOR UNKNOWN INDICATION
  4. ELAVIL [Concomitant]
     Active Substance: AMITRIPTYLINE HYDROCHLORIDE
     Indication: INSOMNIA

REACTIONS (10)
  - Papilloma viral infection [Unknown]
  - Pelvic pain [Unknown]
  - Vaginal haemorrhage [Unknown]
  - Cervix oedema [Unknown]
  - Cervical dysplasia [Unknown]
  - Uterine cervix stenosis [Unknown]
  - Anxiety [Unknown]
  - Smear cervix abnormal [Unknown]
  - Device expulsion [Recovered/Resolved]
  - Cervix haemorrhage uterine [Unknown]

NARRATIVE: CASE EVENT DATE: 20140811
